FAERS Safety Report 7131069-1 (Version None)
Quarter: 2010Q4

REPORT INFORMATION
  Report Type: 
  Country: None (occurrence: None)
  Receive Date: 20101201
  Receipt Date: 20101123
  Transmission Date: 20110411
  Serious: Yes (Other)
  Sender: FDA-Public Use
  Company Number: US-GENZYME-THYM-1002113

PATIENT
  Age: 10 Year
  Sex: Female

DRUGS (13)
  1. THYMOGLOBULIN [Suspect]
     Indication: TRANSPLANT REJECTION
     Dosage: UNK
     Route: 042
  2. TACROLIMUS [Concomitant]
     Indication: IMMUNOSUPPRESSION
  3. MYCOPHENOLATE MOFETIL [Concomitant]
     Indication: IMMUNOSUPPRESSION
  4. PREDNISONE [Concomitant]
     Indication: IMMUNOSUPPRESSION
  5. ANTIBIOTICS [Concomitant]
     Indication: CHOLECYSTITIS
  6. EPINEPHRINE [Concomitant]
     Indication: HAEMODYNAMIC INSTABILITY
  7. NOREPINEPHRINE [Concomitant]
     Indication: HAEMODYNAMIC INSTABILITY
  8. VASOPRESSIN [Concomitant]
     Indication: HAEMODYNAMIC INSTABILITY
  9. SOLU-MEDROL [Concomitant]
     Indication: TRANSPLANT REJECTION
     Dosage: 5 MG/KG, BID
  10. SOLU-MEDROL [Concomitant]
     Dosage: 1.25 MG/KG, BID
  11. SOLU-MEDROL [Concomitant]
     Dosage: 0.2 MG/KG, UNK
  12. RITUXIMAB [Concomitant]
     Indication: TRANSPLANT REJECTION
     Dosage: 375 MG/M2, UNK
  13. IMMUNE GLOBULIN NOS [Concomitant]
     Indication: TRANSPLANT REJECTION
     Route: 042

REACTIONS (4)
  - ASPERGILLOSIS [None]
  - CYTOMEGALOVIRUS TEST POSITIVE [None]
  - ENCEPHALOPATHY [None]
  - HERPES SIMPLEX [None]
